FAERS Safety Report 14513047 (Version 1)
Quarter: 2018Q1

REPORT INFORMATION
  Report Type: Spontaneous
  Country: US (occurrence: US)
  Receive Date: 20180209
  Receipt Date: 20180209
  Transmission Date: 20180509
  Serious: No
  Sender: FDA-Public Use
  Company Number: US-ALLERGAN-1730344US

PATIENT
  Age: 60 Year
  Sex: Male

DRUGS (1)
  1. RESTASIS [Suspect]
     Active Substance: CYCLOSPORINE
     Indication: CORNEAL EROSION
     Dosage: UNK
     Route: 047

REACTIONS (2)
  - Therapeutic response unexpected [Unknown]
  - Off label use [Unknown]
